FAERS Safety Report 10232615 (Version 1)
Quarter: 2014Q2

REPORT INFORMATION
  Report Type: Spontaneous
  Country: US (occurrence: None)
  Receive Date: 20140611
  Receipt Date: 20140611
  Transmission Date: 20141212
  Serious: Yes (Other)
  Sender: FDA-Public Use
  Company Number: None

PATIENT
  Age: 58 Year
  Sex: Female
  Weight: 113.4 kg

DRUGS (1)
  1. MIRAPEX [Suspect]
     Indication: RESTLESS LEGS SYNDROME
     Dosage: 1.5MG.TAB, TWICE DAILY, TAKEN BY MOUTH
     Route: 048

REACTIONS (30)
  - Feeling abnormal [None]
  - Fall [None]
  - Balance disorder [None]
  - Tremor [None]
  - Confusional state [None]
  - Dry mouth [None]
  - Anxiety [None]
  - Hallucination [None]
  - Dyspepsia [None]
  - Fatigue [None]
  - Compulsive shopping [None]
  - Pathological gambling [None]
  - Abnormal behaviour [None]
  - Aggression [None]
  - Mental disorder [None]
  - Suicidal ideation [None]
  - Somnolence [None]
  - Tooth injury [None]
  - Joint swelling [None]
  - Skin ulcer [None]
  - Irritability [None]
  - Dysuria [None]
  - Disturbance in attention [None]
  - Economic problem [None]
  - Pathological gambling [None]
  - Theft [None]
  - Economic problem [None]
  - Insomnia [None]
  - Myosclerosis [None]
  - Personality change [None]
